FAERS Safety Report 6402535-9 (Version None)
Quarter: 2009Q4

REPORT INFORMATION
  Report Type: 
  Country: None (occurrence: None)
  Receive Date: 20091009
  Receipt Date: 20090930
  Transmission Date: 20100525
  Serious: Yes (Hospitalization)
  Sender: FDA-Public Use
  Company Number: ADR34602009

PATIENT
  Age: 68 Year
  Sex: Female

DRUGS (7)
  1. CIPROFLOXACIN [Suspect]
     Dosage: 20 MG ORAL
     Route: 048
     Dates: start: 20090228
  2. CHEMOTHERAPY [Concomitant]
  3. DOTHIEPIN [Concomitant]
  4. LEVOTHYROXINE SODIUM [Concomitant]
  5. METFORMIN HCL [Concomitant]
  6. ALBUTEROL [Concomitant]
  7. SIMVASTATIN [Concomitant]

REACTIONS (3)
  - PURPURA [None]
  - RASH [None]
  - THROMBOCYTOPENIA [None]
